FAERS Safety Report 9410646 (Version 1)
Quarter: 2013Q3

REPORT INFORMATION
  Report Type: Spontaneous
  Country: GB (occurrence: GB)
  Receive Date: 20130719
  Receipt Date: 20130719
  Transmission Date: 20140515
  Serious: Yes (Hospitalization)
  Sender: FDA-Public Use
  Company Number: GB-ASTRAZENECA-2013SE52110

PATIENT
  Age: 62 Year
  Sex: Female
  Weight: 87 kg

DRUGS (30)
  1. TICAGRELOR [Suspect]
     Indication: ACUTE MYOCARDIAL INFARCTION
     Route: 048
     Dates: start: 20130621, end: 20130627
  2. ALFENTANIL [Concomitant]
     Dates: start: 20130624
  3. ASPIRIN [Concomitant]
  4. CARBAMAZEPINE [Concomitant]
  5. CHLORHEXIDINE [Concomitant]
  6. CO-AMOXICLAV [Concomitant]
     Dates: start: 20130623, end: 20130624
  7. FONDAPARINUX [Concomitant]
     Dates: start: 20130622, end: 20130625
  8. FUROSEMIDE [Concomitant]
     Dates: start: 20130624
  9. HUMULIN S [Concomitant]
     Dates: start: 20130624
  10. HYDROCORTISONE [Concomitant]
     Dates: start: 20130624, end: 20130628
  11. IPRATROPIUM [Concomitant]
     Dates: start: 20130624
  12. IRBESARTAN [Concomitant]
  13. ISOSORBIDE MONONITRATE [Concomitant]
  14. MIRTAZAPINE [Concomitant]
  15. NICORANDIL [Concomitant]
  16. NITRAZEPAM [Concomitant]
  17. NORADRENALINE [Concomitant]
     Dates: start: 20130624
  18. NUTRITIONAL SUPPLEMENT [Concomitant]
  19. OLANZAPINE [Concomitant]
     Dates: start: 20130625
  20. OMEPRAZOLE [Concomitant]
     Dates: start: 20130625
  21. PROCYCLIDINE [Concomitant]
  22. PROMAZINE [Concomitant]
  23. PROPOFOL [Concomitant]
     Dates: start: 20130624
  24. SALBUTAMOL [Concomitant]
     Dates: start: 20130624
  25. SALBUTAMOL [Concomitant]
  26. SENNA [Concomitant]
     Dates: start: 20130624
  27. SERETIDE [Concomitant]
  28. SERTRALINE [Concomitant]
  29. TAZOCIN [Concomitant]
     Dates: start: 20130624
  30. VASOPRESSIN [Concomitant]
     Dates: start: 20130625

REACTIONS (5)
  - Condition aggravated [Unknown]
  - Liver function test abnormal [Unknown]
  - Renal impairment [Unknown]
  - Feeding tube complication [Unknown]
  - Haemorrhage [Unknown]
